FAERS Safety Report 6460128-1 (Version None)
Quarter: 2009Q4

REPORT INFORMATION
  Report Type: 
  Country: None (occurrence: None)
  Receive Date: 20091129
  Receipt Date: 20091125
  Transmission Date: 20100525
  Serious: Yes (Death, Other)
  Sender: FDA-Public Use
  Company Number: PHHY2009BR52009

PATIENT
  Sex: Female

DRUGS (6)
  1. FORASEQ [Suspect]
     Indication: BRONCHITIS
     Dosage: UNK
     Dates: start: 20080101
  2. MONOCORDIL [Concomitant]
     Indication: CARDIAC FAILURE CONGESTIVE
     Dosage: 2 DF/DAY
     Route: 048
  3. CARVEDILOL [Concomitant]
     Indication: CARDIAC FAILURE CONGESTIVE
     Dosage: 2 DF/DAY
     Route: 048
  4. LASIX [Concomitant]
     Indication: HYPERTENSION
     Dosage: 2 DF/DAY
     Route: 048
  5. CAPOTEN [Concomitant]
     Indication: HYPERTENSION
     Route: 048
  6. SINVACOR [Concomitant]
     Indication: CARDIAC FAILURE CONGESTIVE
     Dosage: 1 DF, QD
     Route: 048

REACTIONS (2)
  - ASPHYXIA [None]
  - RESPIRATORY ARREST [None]
